FAERS Safety Report 17641403 (Version 1)
Quarter: 2020Q2

REPORT INFORMATION
  Report Type: Spontaneous
  Country: US (occurrence: US)
  Receive Date: 20200408
  Receipt Date: 20200408
  Transmission Date: 20200713
  Serious: Yes (Other)
  Sender: FDA-Public Use
  Company Number: US-TEVA-2020-US-1218182

PATIENT
  Age: 53 Year
  Sex: Female

DRUGS (10)
  1. CAPECITABINE. [Concomitant]
     Active Substance: CAPECITABINE
     Indication: MALIGNANT NEOPLASM OF AMPULLA OF VATER
  2. 5-FLUOROURACIL [Concomitant]
     Active Substance: FLUOROURACIL
     Indication: SIGNET-RING CELL CARCINOMA
     Dosage: 400 MG/M2; MODIFIED FOLFOX-6 REGIMEN
     Route: 040
     Dates: start: 20110907, end: 20120118
  3. LEUCOVORIN. [Concomitant]
     Active Substance: LEUCOVORIN
     Indication: SIGNET-RING CELL CARCINOMA
     Dosage: 200 MG/M2 MODIFIED FOLFOX-6 REGIMEN
     Route: 041
     Dates: start: 20110907, end: 20120118
  4. LEUCOVORIN. [Concomitant]
     Active Substance: LEUCOVORIN
     Indication: MALIGNANT NEOPLASM OF AMPULLA OF VATER
  5. GEMCITABINE. [Suspect]
     Active Substance: GEMCITABINE
     Indication: SIGNET-RING CELL CARCINOMA
     Dosage: 1000 MG/M2 ON DAY 1, 8, AND 15 OF A 28-DAY CYCLE
     Route: 065
     Dates: start: 2010, end: 201101
  6. OXALIPLATIN. [Suspect]
     Active Substance: OXALIPLATIN
     Indication: SIGNET-RING CELL CARCINOMA
     Dosage: 85 MG/M2 ONCE IN 2 WEEKS MODIFIED FOLFOX-6 REGIMEN
     Route: 065
     Dates: start: 20110907, end: 20120118
  7. CAPECITABINE. [Concomitant]
     Active Substance: CAPECITABINE
     Indication: SIGNET-RING CELL CARCINOMA
     Dosage: 825 MG/M2 TWICE PER DAY
     Route: 048
     Dates: start: 20100614, end: 201101
  8. 5-FLUOROURACIL [Concomitant]
     Active Substance: FLUOROURACIL
     Indication: MALIGNANT NEOPLASM OF AMPULLA OF VATER
  9. GEMCITABINE. [Suspect]
     Active Substance: GEMCITABINE
     Indication: MALIGNANT NEOPLASM OF AMPULLA OF VATER
  10. OXALIPLATIN. [Suspect]
     Active Substance: OXALIPLATIN
     Indication: MALIGNANT NEOPLASM OF AMPULLA OF VATER

REACTIONS (3)
  - Cytopenia [Unknown]
  - Bone marrow failure [Unknown]
  - Neuropathy peripheral [Unknown]
